FAERS Safety Report 5588030-8 (Version None)
Quarter: 2008Q1

REPORT INFORMATION
  Report Type: 
  Country: None (occurrence: None)
  Receive Date: 20080111
  Receipt Date: 20071228
  Transmission Date: 20080703
  Serious: Yes (Death)
  Sender: FDA-Public Use
  Company Number: JP-PFIZER INC-2007108569

PATIENT
  Age: 80 Year
  Sex: Female

DRUGS (2)
  1. VFEND [Suspect]
     Dosage: DAILY DOSE:400MG
     Route: 042
  2. BIAPENEM [Suspect]
     Route: 042

REACTIONS (4)
  - BLOOD SODIUM DECREASED [None]
  - HYPOGLYCAEMIA [None]
  - PNEUMONIA FUNGAL [None]
  - RENAL FAILURE [None]
